FAERS Safety Report 16000733 (Version 1)
Quarter: 2019Q1

REPORT INFORMATION
  Report Type: Spontaneous
  Country: US (occurrence: US)
  Receive Date: 20190225
  Receipt Date: 20190225
  Transmission Date: 20190418
  Serious: No
  Sender: FDA-Public Use
  Company Number: US-AMREGENT-20181827

PATIENT
  Sex: Female

DRUGS (1)
  1. ESTRADIOL VALERATE INJECTION, USP (0870-05) [Suspect]
     Active Substance: ESTRADIOL VALERATE
     Dosage: 10 MG, EVERY 2 WEEKS
     Route: 030
     Dates: end: 2017

REACTIONS (3)
  - Hormone level abnormal [Recovered/Resolved]
  - Hyperhidrosis [Not Recovered/Not Resolved]
  - Hair texture abnormal [Recovered/Resolved]

NARRATIVE: CASE EVENT DATE: 2016
